FAERS Safety Report 18174764 (Version 2)
Quarter: 2021Q1

REPORT INFORMATION
  Report Type: Spontaneous
  Country: US (occurrence: US)
  Receive Date: 20200820
  Receipt Date: 20210208
  Transmission Date: 20210419
  Serious: No
  Sender: FDA-Public Use
  Company Number: US-PFIZER INC-2020321643

PATIENT
  Age: 42 Year
  Sex: Female

DRUGS (1)
  1. XELJANZ [Suspect]
     Active Substance: TOFACITINIB CITRATE
     Indication: RHEUMATOID ARTHRITIS
     Dosage: 5 MG, 2X/DAY (ONE TABLET TWICE DAILY)
     Route: 048
     Dates: start: 202007, end: 202012

REACTIONS (3)
  - Pain [Unknown]
  - Drug ineffective [Unknown]
  - Peripheral vascular disorder [Unknown]
